FAERS Safety Report 8870775 (Version 1)
Quarter: 2012Q4

REPORT INFORMATION
  Report Type: 
  Country: US (occurrence: US)
  Receive Date: 20121026
  Receipt Date: 20121026
  Transmission Date: 20130627
  Serious: No
  Sender: FDA-Public Use
  Company Number: US-AMGEN-USASP2012046624

PATIENT
  Age: 46 Year
  Sex: Female

DRUGS (1)
  1. ENBREL [Suspect]
     Indication: RHEUMATOID ARTHRITIS
     Dosage: 50 mg, qwk
     Dates: start: 20120116

REACTIONS (5)
  - Vulvovaginal pain [Not Recovered/Not Resolved]
  - Ear infection [Recovered/Resolved]
  - Urinary tract infection [Recovered/Resolved]
  - Vaginal abscess [Not Recovered/Not Resolved]
  - Infection [Unknown]
